FAERS Safety Report 4750175-X (Version None)
Quarter: 2005Q3

REPORT INFORMATION
  Report Type: 
  Country: None (occurrence: None)
  Receive Date: 20050823
  Receipt Date: 20050811
  Transmission Date: 20060218
  Serious: Yes (Other)
  Sender: FDA-Public Use
  Company Number: CA-JNJFOC-20050507402

PATIENT
  Sex: Female
  Weight: 49.6 kg

DRUGS (11)
  1. REMICADE [Suspect]
     Dosage: SECOND TREATMENT
     Route: 042
  2. REMICADE [Suspect]
     Route: 042
  3. REMICADE [Suspect]
     Indication: RHEUMATOID ARTHRITIS
     Route: 042
  4. IMMOVAN [Concomitant]
     Indication: INSOMNIA
     Route: 048
  5. CORTISONE ACETATE TAB [Concomitant]
     Indication: RHEUMATOID ARTHRITIS
     Route: 048
  6. TYLENOL [Concomitant]
     Indication: RHEUMATOID ARTHRITIS
     Route: 048
  7. IBUPROFEN [Concomitant]
     Indication: RHEUMATOID ARTHRITIS
     Route: 048
  8. HORMONE [Concomitant]
     Indication: MENOPAUSE
     Route: 048
  9. PREDNISONE [Concomitant]
  10. PROMETRIUM [Concomitant]
  11. ESTROGEL [Concomitant]

REACTIONS (2)
  - HYPOAESTHESIA [None]
  - SPEECH DISORDER [None]
